FAERS Safety Report 9913533 (Version 1)
Quarter: 2014Q1

REPORT INFORMATION
  Report Type: Spontaneous
  Country: DK (occurrence: None)
  Receive Date: 20140218
  Receipt Date: 20140218
  Transmission Date: 20141002
  Serious: Yes (Hospitalization)
  Sender: FDA-Public Use
  Company Number: FK201400499

PATIENT
  Age: 19 Year
  Sex: Female

DRUGS (2)
  1. METHOTREXATE (MANUFACTURER UNKNOWN) (METHOTREXATE) (METHOTREXATE) [Suspect]
     Indication: IMMUNOSUPPRESSION
     Dates: start: 1998
  2. CYCLOSPORIN A [Suspect]
     Indication: IMMUNOSUPPRESSION
     Dates: start: 1998

REACTIONS (4)
  - Graft versus host disease [None]
  - Epstein-Barr virus infection [None]
  - Radiculitis [None]
  - Respiratory failure [None]
